FAERS Safety Report 22008835 (Version 1)
Quarter: 2023Q1

REPORT INFORMATION
  Report Type: Spontaneous
  Country: HR (occurrence: HR)
  Receive Date: 20230219
  Receipt Date: 20230219
  Transmission Date: 20230418
  Serious: Yes (Other)
  Sender: FDA-Public Use
  Company Number: HR-BAYER-2023A018345

PATIENT
  Age: 80 Year
  Sex: Male

DRUGS (5)
  1. XARELTO [Suspect]
     Active Substance: RIVAROXABAN
     Indication: Product used for unknown indication
     Route: 048
  2. ALOGLIPTIN AND METFORMIN HYDROCHLORIDE [Concomitant]
     Active Substance: ALOGLIPTIN BENZOATE\METFORMIN HYDROCHLORIDE
     Dosage: 12.5/1000 MG
  3. SIMVASTATIN [Concomitant]
     Active Substance: SIMVASTATIN
     Dosage: 20 MG
  4. PERINDOPRIL [Concomitant]
     Active Substance: PERINDOPRIL
     Dosage: 2 MG
  5. AMIODARONE [Concomitant]
     Active Substance: AMIODARONE
     Dosage: 200 MG

REACTIONS (2)
  - Atrial fibrillation [Unknown]
  - Arteriosclerosis [Unknown]
